FAERS Safety Report 24150614 (Version 1)
Quarter: 2024Q3

REPORT INFORMATION
  Report Type: Other
  Country: JP (occurrence: JP)
  Receive Date: 20240730
  Receipt Date: 20240730
  Transmission Date: 20241016
  Serious: Yes (Life-Threatening, Other)
  Sender: ALVOGEN
  Company Number: JP-ALVOGEN-2024095143

PATIENT
  Age: 55 Year
  Sex: Female

DRUGS (32)
  1. DOXORUBICIN [Suspect]
     Active Substance: DOXORUBICIN
     Indication: Leiomyosarcoma metastatic
     Dosage: STRENGTH: 20 MG/M2, CYCLE 1, DOSAGE 100 PERCENTAGE
  2. DOXORUBICIN [Suspect]
     Active Substance: DOXORUBICIN
     Indication: Leiomyosarcoma metastatic
     Dosage: STRENGTH: 20 MG/M2, CYCLE 2, DOSAGE 80 PERCENTAGE
  3. DOXORUBICIN [Suspect]
     Active Substance: DOXORUBICIN
     Indication: Leiomyosarcoma metastatic
     Dosage: STRENGTH: 20 MG/M2, CYCLE 3, DOSAGE 80 PERCENTAGE
  4. DOXORUBICIN [Suspect]
     Active Substance: DOXORUBICIN
     Indication: Leiomyosarcoma metastatic
     Dosage: STRENGTH: 20 MG/M2, CYCLE 4, DOSAGE 70 PERCENTAGE
  5. DOXORUBICIN [Suspect]
     Active Substance: DOXORUBICIN
     Indication: Leiomyosarcoma metastatic
     Dosage: STRENGTH: 20 MG/M2, CYCLE 5, DOSAGE 70 PERCENTAGE
  6. DOXORUBICIN [Suspect]
     Active Substance: DOXORUBICIN
     Indication: Leiomyosarcoma metastatic
     Dosage: STRENGTH: 20 MG/M2, CYCLE 6, DOSAGE 70 PERCENTAGE
  7. DOXORUBICIN [Suspect]
     Active Substance: DOXORUBICIN
     Indication: Leiomyosarcoma metastatic
     Dosage: STRENGTH: 20 MG/M2, 80%?AFTER DISEASE PROGRESSION
  8. DOXORUBICIN [Suspect]
     Active Substance: DOXORUBICIN
     Indication: Leiomyosarcoma metastatic
     Dosage: STRENGTH: 20 MG/M2, 70%?AFTER DISEASE PROGRESSION
  9. IFOSFAMIDE [Suspect]
     Active Substance: IFOSFAMIDE
     Indication: Leiomyosarcoma metastatic
     Dosage: STRENGTH: 2500 MG/M2, CYCLE 1, DOSAGE 100 PERCENTAGE
  10. IFOSFAMIDE [Suspect]
     Active Substance: IFOSFAMIDE
     Indication: Leiomyosarcoma metastatic
     Dosage: STRENGTH: 2500 MG/M2, CYCLE 2, DOSAGE 80 PERCENTAGE
  11. IFOSFAMIDE [Suspect]
     Active Substance: IFOSFAMIDE
     Indication: Leiomyosarcoma metastatic
     Dosage: STRENGTH: 2500 MG/M2, CYCLE 3, DOSAGE 80 PERCENTAGE
  12. IFOSFAMIDE [Suspect]
     Active Substance: IFOSFAMIDE
     Indication: Leiomyosarcoma metastatic
     Dosage: STRENGTH: 2500 MG/M2, CYCLE 4, DOSAGE 70 PERCENTAGE
  13. IFOSFAMIDE [Suspect]
     Active Substance: IFOSFAMIDE
     Indication: Leiomyosarcoma metastatic
     Dosage: STRENGTH: 2500 MG/M2, CYCLE 5, DOSAGE 70 PERCENTAGE
  14. IFOSFAMIDE [Suspect]
     Active Substance: IFOSFAMIDE
     Indication: Leiomyosarcoma metastatic
     Dosage: STRENGTH: 2500 MG/M2, CYCLE 6, DOSAGE 70 PERCENTAGE
  15. IFOSFAMIDE [Suspect]
     Active Substance: IFOSFAMIDE
     Indication: Leiomyosarcoma metastatic
     Dosage: STRENGTH: 2500 MG/M2, 80%?AFTER DISEASE PROGRESSION
  16. IFOSFAMIDE [Suspect]
     Active Substance: IFOSFAMIDE
     Indication: Leiomyosarcoma metastatic
     Dosage: STRENGTH: 2500 MG/M2, 70%?AFTER DISEASE PROGRESSION
  17. DACARBAZINE [Suspect]
     Active Substance: DACARBAZINE
     Indication: Leiomyosarcoma metastatic
     Dosage: STRENGTH: 300 MG/M2 ONCE DAILY ON DAYS 1-3, CYCLE 1, DOSAGE 100 PERCENTAGE
  18. DACARBAZINE [Suspect]
     Active Substance: DACARBAZINE
     Indication: Leiomyosarcoma metastatic
     Dosage: STRENGTH: 300 MG/M2 ONCE DAILY ON DAYS 1-3, CYCLE 2, DOSAGE 80 PERCENTAGE
  19. DACARBAZINE [Suspect]
     Active Substance: DACARBAZINE
     Indication: Leiomyosarcoma metastatic
     Dosage: STRENGTH: 300 MG/M2 ONCE DAILY ON DAYS 1-3, CYCLE 3, DOSAGE 80 PERCENTAGE
  20. DACARBAZINE [Suspect]
     Active Substance: DACARBAZINE
     Indication: Leiomyosarcoma metastatic
     Dosage: STRENGTH: 300 MG/M2 ONCE DAILY ON DAYS 1-3, CYCLE 4, DOSAGE 70 PERCENTAGE
  21. DACARBAZINE [Suspect]
     Active Substance: DACARBAZINE
     Indication: Leiomyosarcoma metastatic
     Dosage: STRENGTH: 300 MG/M2 ONCE DAILY ON DAYS 1-3, CYCLE 5, DOSAGE 70 PERCENTAGE
  22. DACARBAZINE [Suspect]
     Active Substance: DACARBAZINE
     Indication: Leiomyosarcoma metastatic
     Dosage: STRENGTH: 300 MG/M2 ONCE DAILY ON DAYS 1-3, CYCLE 6, DOSAGE 70 PERCENTAGE
  23. DACARBAZINE [Suspect]
     Active Substance: DACARBAZINE
     Indication: Leiomyosarcoma metastatic
     Dosage: STRENGTH: 300 MG/M2 ONCE DAILY ON DAYS 1-3, 80%?AFTER DISEASE PROGRESSION
  24. DACARBAZINE [Suspect]
     Active Substance: DACARBAZINE
     Indication: Leiomyosarcoma metastatic
     Dosage: STRENGTH: 300 MG/M2 ONCE DAILY ON DAYS 1-3, 70%?AFTER DISEASE PROGRESSION
  25. MESNA [Suspect]
     Active Substance: MESNA
     Indication: Leiomyosarcoma metastatic
     Dosage: STRENGTH: 500 MG/M2 THRICE DAILY FOLLOWING IFOSFAMIDE, CYCLE 1, DOSAGE 100 PERCENTAGE
  26. MESNA [Suspect]
     Active Substance: MESNA
     Indication: Leiomyosarcoma metastatic
     Dosage: STRENGTH: 500 MG/M2 THRICE DAILY FOLLOWING IFOSFAMIDE, CYCLE 2, DOSAGE 80 PERCENTAGE
  27. MESNA [Suspect]
     Active Substance: MESNA
     Indication: Leiomyosarcoma metastatic
     Dosage: STRENGTH: 500 MG/M2 THRICE DAILY FOLLOWING IFOSFAMIDE, CYCLE 3, DOSAGE 80 PERCENTAGE
  28. MESNA [Suspect]
     Active Substance: MESNA
     Indication: Leiomyosarcoma metastatic
     Dosage: STRENGTH: 500 MG/M2 THRICE DAILY FOLLOWING IFOSFAMIDE, CYCLE 4, DOSAGE 70 PERCENTAGE
  29. MESNA [Suspect]
     Active Substance: MESNA
     Indication: Leiomyosarcoma metastatic
     Dosage: STRENGTH: 500 MG/M2 THRICE DAILY FOLLOWING IFOSFAMIDE, CYCLE 5, DOSAGE 70 PERCENTAGE
  30. MESNA [Suspect]
     Active Substance: MESNA
     Indication: Leiomyosarcoma metastatic
     Dosage: STRENGTH: 500 MG/M2 THRICE DAILY FOLLOWING IFOSFAMIDE, CYCLE 6, DOSAGE 70 PERCENTAGE
  31. MESNA [Suspect]
     Active Substance: MESNA
     Indication: Leiomyosarcoma metastatic
     Dosage: STRENGTH: 500 MG/M2 THRICE DAILY FOLLOWING IFOSFAMIDE, 80%?AFTER DISEASE PROGRESSION
  32. MESNA [Suspect]
     Active Substance: MESNA
     Indication: Leiomyosarcoma metastatic
     Dosage: STRENGTH: 500 MG/M2 THRICE DAILY FOLLOWING IFOSFAMIDE, 70%?AFTER DISEASE PROGRESSION

REACTIONS (4)
  - Febrile neutropenia [Unknown]
  - Neutropenia [Unknown]
  - Thrombocytopenia [Unknown]
  - Anaemia [Unknown]
